FAERS Safety Report 26118973 (Version 1)
Quarter: 2025Q4

REPORT INFORMATION
  Report Type: Spontaneous
  Country: CN (occurrence: CN)
  Receive Date: 20251204
  Receipt Date: 20251204
  Transmission Date: 20260117
  Serious: Yes (Hospitalization)
  Sender: BEIGENE
  Company Number: CN-BEONEMEDICINES-BGN-2025-021171

PATIENT
  Age: 73 Year
  Sex: Male
  Weight: 82.5 kg

DRUGS (16)
  1. TISLELIZUMAB [Suspect]
     Active Substance: TISLELIZUMAB
     Indication: Lung neoplasm malignant
     Dosage: 200 MILLIGRAM
  2. TISLELIZUMAB [Suspect]
     Active Substance: TISLELIZUMAB
     Dosage: 200 MILLIGRAM
  3. TISLELIZUMAB [Suspect]
     Active Substance: TISLELIZUMAB
     Dosage: 200 MILLIGRAM
     Route: 041
  4. TISLELIZUMAB [Suspect]
     Active Substance: TISLELIZUMAB
     Dosage: 200 MILLIGRAM
     Route: 041
  5. TISLELIZUMAB [Suspect]
     Active Substance: TISLELIZUMAB
     Dosage: 200 MILLIGRAM
  6. TISLELIZUMAB [Suspect]
     Active Substance: TISLELIZUMAB
     Dosage: 200 MILLIGRAM
  7. TISLELIZUMAB [Suspect]
     Active Substance: TISLELIZUMAB
     Dosage: 200 MILLIGRAM
     Route: 041
  8. TISLELIZUMAB [Suspect]
     Active Substance: TISLELIZUMAB
     Dosage: 200 MILLIGRAM
     Route: 041
  9. ETOPOSIDE [Suspect]
     Active Substance: ETOPOSIDE
     Indication: Lung neoplasm malignant
     Dosage: 0.1 GRAM D1-5
  10. ETOPOSIDE [Suspect]
     Active Substance: ETOPOSIDE
     Dosage: 0.1 GRAM D1-5
     Route: 041
  11. ETOPOSIDE [Suspect]
     Active Substance: ETOPOSIDE
     Dosage: 0.1 GRAM D1-5
  12. ETOPOSIDE [Suspect]
     Active Substance: ETOPOSIDE
     Dosage: 0.1 GRAM D1-5
     Route: 041
  13. CARBOPLATIN [Suspect]
     Active Substance: CARBOPLATIN
     Indication: Lung neoplasm malignant
     Dosage: 300 MILLIGRAM
  14. CARBOPLATIN [Suspect]
     Active Substance: CARBOPLATIN
     Dosage: 300 MILLIGRAM
     Route: 041
  15. CARBOPLATIN [Suspect]
     Active Substance: CARBOPLATIN
     Dosage: 100 MILLILITER
  16. CARBOPLATIN [Suspect]
     Active Substance: CARBOPLATIN
     Dosage: 100 MILLILITER
     Route: 041

REACTIONS (5)
  - Myelosuppression [Recovering/Resolving]
  - White blood cell count decreased [Recovering/Resolving]
  - Neutrophil count decreased [Recovering/Resolving]
  - Anaemia [Recovering/Resolving]
  - Platelet count decreased [Recovering/Resolving]

NARRATIVE: CASE EVENT DATE: 20251122
